FAERS Safety Report 11159044 (Version 1)
Quarter: 2015Q2

REPORT INFORMATION
  Report Type: Spontaneous
  Country: IT (occurrence: IT)
  Receive Date: 20150603
  Receipt Date: 20150603
  Transmission Date: 20150821
  Serious: Yes (Other)
  Sender: FDA-Public Use
  Company Number: IT-IMPAX LABORATORIES, INC-2015-IPXL-00595

PATIENT
  Sex: Female

DRUGS (1)
  1. CARBIDOPA-LEVODOPA ER [Suspect]
     Active Substance: CARBIDOPA\LEVODOPA
     Indication: PARKINSON^S DISEASE
     Dosage: 1650 MG, UNK
     Route: 065

REACTIONS (10)
  - Quadriplegia [Unknown]
  - Gastroenteritis [Unknown]
  - Abasia [Unknown]
  - Neuropathy peripheral [Unknown]
  - Paraesthesia [Not Recovered/Not Resolved]
  - Hypoaesthesia [Not Recovered/Not Resolved]
  - Condition aggravated [Unknown]
  - Ataxia [Unknown]
  - Guillain-Barre syndrome [Unknown]
  - Sensory disturbance [Unknown]
